FAERS Safety Report 11915632 (Version 2)
Quarter: 2016Q1

REPORT INFORMATION
  Report Type: Spontaneous
  Country: GB (occurrence: GB)
  Receive Date: 20160114
  Receipt Date: 20160226
  Transmission Date: 20160526
  Serious: Yes (Hospitalization, Disabling)
  Sender: FDA-Public Use
  Company Number: GB-SUN PHARMACEUTICAL INDUSTRIES LTD-2015RR-109578

PATIENT

DRUGS (1)
  1. FLUOXETINE [Suspect]
     Active Substance: FLUOXETINE HYDROCHLORIDE
     Indication: PRODUCT USED FOR UNKNOWN INDICATION
     Route: 065

REACTIONS (7)
  - Poor quality sleep [Unknown]
  - Weight decreased [Unknown]
  - Psychiatric symptom [Unknown]
  - Overdose [Unknown]
  - Depressed mood [Unknown]
  - Decreased appetite [Unknown]
  - Disturbance in attention [Unknown]

NARRATIVE: CASE EVENT DATE: 199510
